FAERS Safety Report 5500308-2 (Version None)
Quarter: 2007Q4

REPORT INFORMATION
  Report Type: 
  Country: None (occurrence: None)
  Receive Date: 20071025
  Receipt Date: 20070917
  Transmission Date: 20080405
  Serious: Yes (Other)
  Sender: FDA-Public Use
  Company Number: EE-SAM-3507082802

PATIENT
  Age: 49 Year
  Sex: Female

DRUGS (1)
  1. TERBISIL TERBINAFINE TABLET [Suspect]
     Indication: TINEA INFECTION
     Dosage: 250 MG, ORAL
     Route: 048
     Dates: start: 20070611, end: 20070709

REACTIONS (1)
  - PSORIASIS [None]
